FAERS Safety Report 6414189-6 (Version None)
Quarter: 2009Q4

REPORT INFORMATION
  Report Type: 
  Country: None (occurrence: None)
  Receive Date: 20091022
  Receipt Date: 20091022
  Transmission Date: 20100525
  Serious: Yes (Hospitalization)
  Sender: FDA-Public Use
  Company Number: None

PATIENT
  Age: 12 Year

DRUGS (1)
  1. VALPROIC ACID [Suspect]
     Indication: AUTOIMMUNE LYMPHOPROLIFERATIVE SYNDROME

REACTIONS (6)
  - ANAEMIA [None]
  - DRUG LEVEL INCREASED [None]
  - FEBRILE NEUTROPENIA [None]
  - LEUKOPENIA [None]
  - PNEUMONIA [None]
  - THROMBOCYTOPENIA [None]
